FAERS Safety Report 8032724-1 (Version None)
Quarter: 2011Q4

REPORT INFORMATION
  Report Type: 
  Country: None (occurrence: None)
  Receive Date: 20111229
  Receipt Date: 20111215
  Transmission Date: 20120403
  Serious: Yes (Hospitalization)
  Sender: FDA-Public Use
  Company Number: DSA_48605_2011

PATIENT
  Age: 84 Year
  Sex: Male

DRUGS (7)
  1. NOZINAN [Concomitant]
  2. TRANXENE [Concomitant]
  3. MICARDIS [Concomitant]
  4. LANSOPRAZOLE [Concomitant]
  5. PREVISCAN  (FLUINDIONE) [Suspect]
     Indication: PRODUCT USED FOR UNKNOWN INDICATION
     Dosage: (1.25 DF QD ORAL)
     Route: 048
     Dates: start: 20100901, end: 20101018
  6. FORADIL [Suspect]
     Indication: PRODUCT USED FOR UNKNOWN INDICATION
     Dosage: (DF RESPIRATORY (INHALATION) )
     Route: 055
  7. DILTIAZEM HCL [Suspect]
     Indication: PRODUCT USED FOR UNKNOWN INDICATION
     Dosage: (90 MG QD ORAL)
     Route: 048
     Dates: start: 20100901, end: 20101001

REACTIONS (8)
  - RASH MACULO-PAPULAR [None]
  - SEPSIS [None]
  - CONTRAINDICATION TO MEDICAL TREATMENT [None]
  - HYPOTENSION [None]
  - RENAL FAILURE [None]
  - SKIN EXFOLIATION [None]
  - TOXIC SKIN ERUPTION [None]
  - LUNG DISORDER [None]
